FAERS Safety Report 6846603-6 (Version None)
Quarter: 2010Q3

REPORT INFORMATION
  Report Type: 
  Country: None (occurrence: None)
  Receive Date: 20100715
  Receipt Date: 20070919
  Transmission Date: 20110219
  Serious: No
  Sender: FDA-Public Use
  Company Number: US-PFIZER INC-2007078832

PATIENT
  Sex: Male
  Weight: 127 kg

DRUGS (8)
  1. CHANTIX [Suspect]
     Indication: SMOKING CESSATION THERAPY
     Dates: start: 20070301, end: 20070301
  2. ACETYLSALICYLIC ACID [Concomitant]
  3. CODEINE [Concomitant]
  4. INSULIN [Concomitant]
  5. METOPROLOL [Concomitant]
     Indication: HYPERTENSION
  6. DOCUSATE SODIUM [Concomitant]
     Indication: FAECES HARD
  7. MULTIPLE VITAMINS [Concomitant]
  8. BUPROPION HYDROCHLORIDE [Concomitant]

REACTIONS (3)
  - ABNORMAL DREAMS [None]
  - HEADACHE [None]
  - INSOMNIA [None]
